FAERS Safety Report 16212467 (Version 2)
Quarter: 2019Q2

REPORT INFORMATION
  Report Type: Spontaneous
  Country: US (occurrence: US)
  Receive Date: 20190418
  Receipt Date: 20190422
  Transmission Date: 20190711
  Serious: No
  Sender: FDA-Public Use
  Company Number: US-PFIZER INC-2019159902

PATIENT
  Sex: Female

DRUGS (1)
  1. CELECOXIB. [Suspect]
     Active Substance: CELECOXIB
     Dosage: UNK (ONE PILL AND THEN I TAKE ANOTHER 2ND DAY AND THE 3RD DAY)

REACTIONS (3)
  - Malaise [Unknown]
  - Lactose intolerance [Unknown]
  - Reaction to excipient [Unknown]
